FAERS Safety Report 9454712 (Version 2)
Quarter: 2013Q3

REPORT INFORMATION
  Report Type: Spontaneous
  Country: US (occurrence: US)
  Receive Date: 20130812
  Receipt Date: 20130910
  Transmission Date: 20140515
  Serious: No
  Sender: FDA-Public Use
  Company Number: US-009507513-1308USA004223

PATIENT
  Age: 18 Year
  Sex: Female
  Weight: 43.54 kg

DRUGS (2)
  1. NEXPLANON [Suspect]
     Indication: CONTRACEPTION
     Dosage: 60MG  ONE ROD EVERY THREE YEARS
     Route: 059
     Dates: start: 20130218, end: 20130808
  2. TOPIRAMATE [Concomitant]
     Dosage: 50 MG, QD

REACTIONS (9)
  - Hypoaesthesia [Recovered/Resolved]
  - Pain in extremity [Not Recovered/Not Resolved]
  - Mood swings [Recovering/Resolving]
  - Dizziness [Recovering/Resolving]
  - Device difficult to use [Recovering/Resolving]
  - Device breakage [Recovering/Resolving]
  - Paraesthesia [Recovering/Resolving]
  - Device kink [Unknown]
  - Device dislocation [Unknown]
